FAERS Safety Report 6040261-9 (Version None)
Quarter: 2009Q1

REPORT INFORMATION
  Report Type: 
  Country: None (occurrence: None)
  Receive Date: 20090116
  Receipt Date: 20080131
  Transmission Date: 20090719
  Serious: No
  Sender: FDA-Public Use
  Company Number: US-BRISTOL-MYERS SQUIBB COMPANY-14060750

PATIENT
  Sex: Male
  Weight: 93 kg

DRUGS (1)
  1. ABILIFY [Suspect]
     Indication: PSYCHOTIC DISORDER
     Dosage: BEGINNING OCT-2007 THEN DECREASED TO 20MG DAILY MID-JAN DECREASED TO 15MG DAILY
     Route: 048
     Dates: start: 20070930

REACTIONS (2)
  - BACK PAIN [None]
  - RESTLESSNESS [None]
